FAERS Safety Report 9671696 (Version 3)
Quarter: 2014Q1

REPORT INFORMATION
  Report Type: Spontaneous
  Country: JP (occurrence: JP)
  Receive Date: 20131106
  Receipt Date: 20140214
  Transmission Date: 20141002
  Serious: Yes (Hospitalization, Other)
  Sender: FDA-Public Use
  Company Number: JP-EISAI INC-E3810-06752-SPO-JP

PATIENT
  Age: 44 Year
  Sex: Male

DRUGS (9)
  1. PARIET (RABEPRAZOLE) [Suspect]
     Indication: GASTRIC ULCER
     Route: 048
     Dates: start: 2002, end: 201303
  2. NEXIUM [Suspect]
     Indication: DUODENAL ULCER
     Route: 065
     Dates: start: 20130422
  3. NU-LOTAN [Suspect]
     Indication: RENAL FAILURE CHRONIC
     Route: 048
  4. KAYEXALATE [Concomitant]
     Indication: RENAL FAILURE CHRONIC
     Route: 048
  5. ARTIST [Concomitant]
     Indication: RENAL FAILURE CHRONIC
     Route: 048
  6. JUSO [Concomitant]
     Indication: PRODUCT USED FOR UNKNOWN INDICATION
     Route: 048
  7. ADALAT-CR [Concomitant]
     Indication: RENAL FAILURE CHRONIC
     Route: 048
  8. ZYLORIC [Concomitant]
     Indication: RENAL FAILURE CHRONIC
     Route: 048
  9. KREMEZIN [Concomitant]
     Indication: RENAL FAILURE CHRONIC
     Route: 048

REACTIONS (5)
  - Hypocalcaemia [Recovering/Resolving]
  - Convulsion [Recovering/Resolving]
  - Loss of consciousness [Recovering/Resolving]
  - Duodenal ulcer haemorrhage [Recovering/Resolving]
  - Hypomagnesaemia [Recovering/Resolving]
